FAERS Safety Report 8927245 (Version 1)
Quarter: 2012Q4

REPORT INFORMATION
  Report Type: Report from Study
  Country: US (occurrence: US)
  Receive Date: 20121127
  Receipt Date: 20121127
  Transmission Date: 20130627
  Serious: Yes (Other)
  Sender: FDA-Public Use
  Company Number: US-JNJFOC-20121100033

PATIENT
  Sex: Female
  Weight: 62.14 kg

DRUGS (6)
  1. REMICADE [Suspect]
     Indication: CROHN^S DISEASE
     Dosage: Dose: 100mg in 250cc saline / solution
     Route: 042
     Dates: start: 201110
  2. REMICADE [Suspect]
     Indication: CROHN^S DISEASE
     Route: 042
     Dates: start: 201208, end: 201208
  3. LORTAB [Concomitant]
     Indication: BACK PAIN
     Dosage: 3-4 tabs daily
     Route: 048
     Dates: start: 201102
  4. PREMPRO [Concomitant]
     Indication: HORMONE REPLACEMENT THERAPY
     Dates: start: 2002
  5. WELLBUTRIN [Concomitant]
     Indication: SMOKING CESSATION THERAPY
     Dates: start: 2002
  6. CELEBREX [Concomitant]
     Indication: ARTHROPATHY
     Dates: start: 2004

REACTIONS (2)
  - Rheumatoid arthritis [Not Recovered/Not Resolved]
  - Drug ineffective [Not Recovered/Not Resolved]
